FAERS Safety Report 9318261 (Version 1)
Quarter: 2013Q2

REPORT INFORMATION
  Report Type: Spontaneous
  Country: US (occurrence: US)
  Receive Date: 20130530
  Receipt Date: 20130530
  Transmission Date: 20140414
  Serious: No
  Sender: FDA-Public Use
  Company Number: US-GLAXOSMITHKLINE-A1009783A

PATIENT
  Age: 62 Year
  Sex: Female

DRUGS (6)
  1. VENTOLIN [Suspect]
     Indication: ASTHMA
     Dosage: 2PUFF AS REQUIRED
     Route: 055
     Dates: start: 20130123
  2. LEVOTHYROXINE [Suspect]
     Indication: AUTOIMMUNE THYROIDITIS
     Dosage: 12.5MCG PER DAY
     Route: 048
     Dates: start: 20130123
  3. PREMPRO [Concomitant]
  4. ALLEGRA [Concomitant]
  5. SUDAFED [Concomitant]
  6. VITAMINS [Concomitant]

REACTIONS (1)
  - Oropharyngeal pain [Not Recovered/Not Resolved]
